FAERS Safety Report 13245575 (Version 2)
Quarter: 2017Q1

REPORT INFORMATION
  Report Type: Spontaneous
  Country: US (occurrence: US)
  Receive Date: 20170217
  Receipt Date: 20170302
  Transmission Date: 20170428
  Serious: Yes (Other)
  Sender: FDA-Public Use
  Company Number: US-ASTRAZENECA-2017SE14626

PATIENT
  Age: 826 Month
  Sex: Male
  Weight: 107.5 kg

DRUGS (4)
  1. BYDUREON [Suspect]
     Active Substance: EXENATIDE
     Indication: TYPE 2 DIABETES MELLITUS
     Dosage: 2 MG 1 COUNT SAMPLE, WEEKLY
     Route: 058
     Dates: start: 201701
  2. BYDUREON [Suspect]
     Active Substance: EXENATIDE
     Indication: TYPE 2 DIABETES MELLITUS
     Dosage: 2 MG 4 COUNT VIAL, WEEKLY
     Route: 058
     Dates: start: 20170206
  3. BYETTA [Suspect]
     Active Substance: EXENATIDE
     Indication: TYPE 2 DIABETES MELLITUS
     Route: 058
     Dates: end: 201612
  4. METFORMIN [Concomitant]
     Active Substance: METFORMIN HYDROCHLORIDE
     Dosage: TWICE DAILY

REACTIONS (9)
  - Weight decreased [Unknown]
  - Blood pressure increased [Unknown]
  - Drug ineffective [Unknown]
  - Product quality issue [Unknown]
  - Mass [Unknown]
  - Glycosylated haemoglobin increased [Unknown]
  - Parkinson^s disease [Unknown]
  - Injection site extravasation [Unknown]
  - Intentional product misuse [Not Recovered/Not Resolved]

NARRATIVE: CASE EVENT DATE: 201612
